FAERS Safety Report 22268708 (Version 1)
Quarter: 2023Q2

REPORT INFORMATION
  Report Type: Spontaneous
  Country: ES (occurrence: ES)
  Receive Date: 20230501
  Receipt Date: 20230501
  Transmission Date: 20230722
  Serious: Yes (Hospitalization)
  Sender: FDA-Public Use
  Company Number: None

PATIENT
  Age: 77 Year
  Sex: Female

DRUGS (4)
  1. QUETIAPINE [Interacting]
     Active Substance: QUETIAPINE
     Indication: Product used for unknown indication
     Dates: start: 20160211, end: 20230323
  2. FENTANYL [Interacting]
     Active Substance: FENTANYL
     Indication: Arthralgia
     Dosage: STRENGTH: 75 MICROGRAMS/HOUR TRANSDERMAL PATCH, 5 PATCHES (PAPER/ AL/PET/PE), 1 PATCH EVERY 72 HOURS
     Dates: start: 20180523, end: 20230318
  3. RIVOTRIL [Interacting]
     Active Substance: CLONAZEPAM
     Indication: Product used for unknown indication
     Dosage: STRENGTH: 0.5 MG
     Dates: start: 20200812, end: 20230323
  4. FENTANYL [Interacting]
     Active Substance: FENTANYL
     Indication: Arthralgia
     Dosage: STRENGTH: 75 MICROGRAMS/HOUR TRANSDERMAL PATCH, 5 PATCHES (PAPER/ AL/PET/PE)
     Dates: start: 20230319, end: 20230323

REACTIONS (3)
  - Respiratory failure [Not Recovered/Not Resolved]
  - Depressed level of consciousness [Not Recovered/Not Resolved]
  - Somnolence [Not Recovered/Not Resolved]

NARRATIVE: CASE EVENT DATE: 20230301
